FAERS Safety Report 19115764 (Version 3)
Quarter: 2021Q2

REPORT INFORMATION
  Report Type: Report from Study
  Country: BE (occurrence: BE)
  Receive Date: 20210409
  Receipt Date: 20210616
  Transmission Date: 20210717
  Serious: Yes (Other)
  Sender: FDA-Public Use
  Company Number: BE-BAUSCH-BL-2021-011284

PATIENT
  Age: 55 Year
  Sex: Male
  Weight: 97.9 kg

DRUGS (11)
  1. FOLIC ACID. [Concomitant]
     Active Substance: FOLIC ACID
     Indication: FOLATE DEFICIENCY
     Dosage: 10 MG, QD
     Route: 048
     Dates: end: 20210317
  2. RHINICUR [Concomitant]
     Indication: SINUSITIS
     Dosage: UNK, 2X/DAY
     Route: 045
     Dates: start: 20210201
  3. NEXIAM [Concomitant]
     Active Substance: ESOMEPRAZOLE
     Indication: DYSPEPSIA
     Dosage: 0.5MG/1G, PRN (IF NECESSARY), DERMAL
     Route: 048
     Dates: start: 202007, end: 20210317
  4. BELLOZAL [Concomitant]
     Active Substance: BILASTINE
     Indication: PRURITUS
     Dosage: 20 MG, PRN (IF NECESSRY)
     Route: 048
     Dates: start: 20210114
  5. IMODIUM [Concomitant]
     Active Substance: LOPERAMIDE HYDROCHLORIDE
     Indication: DIARRHOEA
     Dosage: 2 MG, PRN (IF NECESSARY)
     Route: 048
     Dates: start: 20200817
  6. CEMIPLIMAB [Suspect]
     Active Substance: CEMIPLIMAB
     Indication: SQUAMOUS CELL CARCINOMA OF SKIN
     Dosage: 350 MG, Q3W
     Route: 065
     Dates: start: 20200710, end: 20200710
  7. NOBIRETIC [Concomitant]
     Active Substance: HYDROCHLOROTHIAZIDE\NEBIVOLOL HYDROCHLORIDE
     Indication: HYPERTENSION
     Dosage: 5/25 MG, QD
     Route: 048
     Dates: start: 202001
  8. NASONEX [Concomitant]
     Active Substance: MOMETASONE FUROATE
     Indication: SINUSITIS
     Dosage: 50 UG, 2X/DAY
     Route: 045
     Dates: start: 20210201
  9. DIPROSONE [Concomitant]
     Active Substance: BETAMETHASONE DIPROPIONATE
     Indication: PRURITUS
     Dosage: 0.5MG/1G, PRN (IF NECESSARY), DERMAL
     Route: 065
     Dates: start: 20210114
  10. BELSAR [Concomitant]
     Indication: HYPERTENSION
     Dosage: 40 MG, QD
     Route: 048
     Dates: start: 20200817
  11. FENOFIBRATE. [Suspect]
     Active Substance: FENOFIBRATE
     Indication: HYPERLIPIDAEMIA
     Dosage: 267 MG, QD
     Route: 048
     Dates: start: 20200224

REACTIONS (6)
  - Hepatotoxicity [Recovered/Resolved]
  - Blood alkaline phosphatase increased [Recovered/Resolved]
  - Lipase increased [Recovered/Resolved]
  - Gamma-glutamyltransferase increased [Not Recovered/Not Resolved]
  - Alanine aminotransferase increased [Recovered/Resolved]
  - Aspartate aminotransferase increased [Recovered/Resolved]

NARRATIVE: CASE EVENT DATE: 20210317
